FAERS Safety Report 10100551 (Version 2)
Quarter: 2014Q3

REPORT INFORMATION
  Report Type: Spontaneous
  Country: FR (occurrence: FR)
  Receive Date: 20140423
  Receipt Date: 20140903
  Transmission Date: 20150326
  Serious: Yes (Hospitalization)
  Sender: FDA-Public Use
  Company Number: FR-GLAXOSMITHKLINE-B0985957A

PATIENT
  Age: 75 Year
  Sex: Female

DRUGS (6)
  1. PARACETAMOL [Suspect]
     Active Substance: ACETAMINOPHEN
     Indication: SELF-MEDICATION
     Route: 048
     Dates: start: 201403
  2. TRIATEC [Concomitant]
     Active Substance: RAMIPRIL
     Dosage: 10MG IN THE MORNING
  3. ZELITREX [Suspect]
     Active Substance: VALACYCLOVIR HYDROCHLORIDE
     Indication: HERPES OPHTHALMIC
     Route: 048
     Dates: start: 201403
  4. FLUINDIONE [Suspect]
     Active Substance: FLUINDIONE
     Indication: ATRIAL FIBRILLATION
     Dosage: 20MG IN THE MORNING
     Route: 048
     Dates: end: 20140311
  5. ACEBUTOLOL [Concomitant]
     Active Substance: ACEBUTOLOL
     Dosage: 100MG TWICE PER DAY
  6. FRUSEMID [Concomitant]
     Dosage: 20MG IN THE MORNING

REACTIONS (10)
  - Epistaxis [Recovered/Resolved]
  - Drug interaction [Unknown]
  - Anaemia [Not Recovered/Not Resolved]
  - International normalised ratio increased [Recovered/Resolved]
  - Disorientation [Unknown]
  - Ecchymosis [Unknown]
  - Disturbance in attention [Unknown]
  - Subdural haematoma [Recovering/Resolving]
  - Asthenia [Unknown]
  - Incoherent [Unknown]

NARRATIVE: CASE EVENT DATE: 201403
